FAERS Safety Report 16561386 (Version 5)
Quarter: 2021Q1

REPORT INFORMATION
  Report Type: Spontaneous
  Country: US (occurrence: US)
  Receive Date: 20190711
  Receipt Date: 20210128
  Transmission Date: 20210419
  Serious: Yes (Other)
  Sender: FDA-Public Use
  Company Number: US-BAYER-2018-245452

PATIENT
  Age: 38 Year
  Sex: Female

DRUGS (8)
  1. IBUPROFEN. [Concomitant]
     Active Substance: IBUPROFEN
     Dosage: 800 MG
  2. MIRENA [Concomitant]
     Active Substance: LEVONORGESTREL
  3. ESSURE [Suspect]
     Active Substance: DEVICE
     Indication: FEMALE STERILISATION
     Dosage: UNK
     Dates: start: 201601, end: 20200826
  4. PREDNISONE. [Concomitant]
     Active Substance: PREDNISONE
     Dosage: 50 MG
  5. MIRENA [Concomitant]
     Active Substance: LEVONORGESTREL
     Indication: CONTRACEPTION
     Dosage: 20 ?G PER DAY CONTINUOUSLY
     Route: 015
     Dates: start: 201805
  6. ACETAMINOPHEN. [Concomitant]
     Active Substance: ACETAMINOPHEN
  7. MEDROXYPROGESTERONE ACETATE. [Concomitant]
     Active Substance: MEDROXYPROGESTERONE ACETATE
  8. DIAZEPAM. [Concomitant]
     Active Substance: DIAZEPAM
     Dosage: 10 MG

REACTIONS (13)
  - Hemianaesthesia [Unknown]
  - Dysmenorrhoea [Unknown]
  - Device monitoring procedure not performed [Unknown]
  - Urinary tract infection [Unknown]
  - Device ineffective [Unknown]
  - Pelvic pain [Unknown]
  - Device breakage [Unknown]
  - Dyspareunia [Unknown]
  - Vaginal discharge [Unknown]
  - Varicose vein [Unknown]
  - Pregnancy with contraceptive device [Unknown]
  - Abortion missed [Unknown]
  - Abdominal pain lower [Unknown]

NARRATIVE: CASE EVENT DATE: 2016
